FAERS Safety Report 21658645 (Version 2)
Quarter: 2023Q1

REPORT INFORMATION
  Report Type: Report from Study
  Country: JP (occurrence: JP)
  Receive Date: 20221129
  Receipt Date: 20230214
  Transmission Date: 20230417
  Serious: Yes (Other)
  Sender: FDA-Public Use
  Company Number: JP-ELI_LILLY_AND_COMPANY-JP202112011305AA

PATIENT
  Age: 68 Year
  Sex: Female
  Weight: 49 kg

DRUGS (6)
  1. RETEVMO [Suspect]
     Active Substance: SELPERCATINIB
     Indication: Non-small cell lung cancer
     Dosage: 160 MG, BID
     Route: 048
     Dates: start: 20211214, end: 20211225
  2. RETEVMO [Suspect]
     Active Substance: SELPERCATINIB
     Dosage: 40 MG, BID
     Route: 048
     Dates: start: 20220106, end: 20220113
  3. RETEVMO [Suspect]
     Active Substance: SELPERCATINIB
     Dosage: 80 MG, BID
     Route: 048
     Dates: start: 20220114, end: 20220123
  4. RETEVMO [Suspect]
     Active Substance: SELPERCATINIB
     Dosage: 120 MG, BID
     Route: 048
     Dates: start: 20220124, end: 20220131
  5. RETEVMO [Suspect]
     Active Substance: SELPERCATINIB
     Dosage: 160 MG, BID
     Route: 048
     Dates: start: 20220201, end: 20220407
  6. LASIX [Concomitant]
     Active Substance: FUROSEMIDE
     Indication: Oedema peripheral
     Dosage: UNK

REACTIONS (3)
  - Liver function test increased [Recovered/Resolved]
  - Hypersensitivity [Recovered/Resolved]
  - Hypersensitivity [Recovered/Resolved]

NARRATIVE: CASE EVENT DATE: 20211224
